FAERS Safety Report 8571345-9 (Version None)
Quarter: 2012Q3

REPORT INFORMATION
  Report Type: 
  Country: None (occurrence: None)
  Receive Date: 20120806
  Receipt Date: 20120725
  Transmission Date: 20120928
  Serious: Yes (Other)
  Sender: FDA-Public Use
  Company Number: ES-UCBSA-062901

PATIENT
  Age: 50 Year
  Sex: Female

DRUGS (5)
  1. OMEPRAZOLE [Concomitant]
     Dosage: FOR YEARS
  2. LOSARTAN POTASSIUM [Concomitant]
     Dosage: FOR YEARS
  3. CIMZIA [Suspect]
     Dates: start: 20110901, end: 20120701
  4. FLUOXETINE HYDROCHLORIDE [Concomitant]
     Dosage: FOR YEARS
  5. LORMETAZEPAM [Concomitant]
     Dosage: FOR YEARS

REACTIONS (4)
  - PRURITUS [None]
  - ECZEMA NUMMULAR [None]
  - TOXIC SKIN ERUPTION [None]
  - SKIN PAPILLOMA [None]
